FAERS Safety Report 4959021-2 (Version None)
Quarter: 2006Q1

REPORT INFORMATION
  Report Type: 
  Country: None (occurrence: None)
  Receive Date: 20060328
  Receipt Date: 20060322
  Transmission Date: 20060701
  Serious: Yes (Life-Threatening, Hospitalization)
  Sender: FDA-Public Use
  Company Number: HQWYE764308AUG05

PATIENT
  Age: 48 Year
  Sex: Male
  Weight: 84.1 kg

DRUGS (4)
  1. RAPAMUNE [Suspect]
     Indication: PROPHYLAXIS AGAINST TRANSPLANT REJECTION
     Dosage: 6 MG 1X PER 1 DAY, ORAL
     Route: 048
     Dates: start: 20050407, end: 20050826
  2. MYCOPHENOLATE MOFETIL [Concomitant]
  3. CORTICOSTEROIDS [Concomitant]
  4. ZENAPAX [Concomitant]

REACTIONS (5)
  - DIALYSIS [None]
  - DRUG INEFFECTIVE [None]
  - HYPERSENSITIVITY [None]
  - KIDNEY TRANSPLANT REJECTION [None]
  - NEPHRITIS INTERSTITIAL [None]
